FAERS Safety Report 26111893 (Version 1)
Quarter: 2025Q4

REPORT INFORMATION
  Report Type: Spontaneous
  Country: EU (occurrence: EU)
  Receive Date: 20251202
  Receipt Date: 20251202
  Transmission Date: 20260117
  Serious: Yes (Hospitalization, Other)
  Sender: ACCORD
  Company Number: EU-Accord-515820

PATIENT
  Age: 55 Year
  Sex: Male

DRUGS (4)
  1. BENDAMUSTINE [Suspect]
     Active Substance: BENDAMUSTINE
     Indication: Bone marrow conditioning regimen
  2. ETOPOSIDE [Suspect]
     Active Substance: ETOPOSIDE
     Indication: Bone marrow conditioning regimen
  3. CYTARABINE [Suspect]
     Active Substance: CYTARABINE
     Indication: Bone marrow conditioning regimen
  4. MELPHALAN [Suspect]
     Active Substance: MELPHALAN
     Indication: Bone marrow conditioning regimen

REACTIONS (7)
  - Cytomegalovirus colitis [Recovering/Resolving]
  - Hepatitis [Recovering/Resolving]
  - Influenza [Unknown]
  - Clostridium difficile colitis [Recovering/Resolving]
  - Febrile neutropenia [Unknown]
  - Liver injury [Recovering/Resolving]
  - Colitis [Recovered/Resolved]
